FAERS Safety Report 13883435 (Version 1)
Quarter: 2017Q3

REPORT INFORMATION
  Report Type: Other
  Country: NL (occurrence: NL)
  Receive Date: 20170818
  Receipt Date: 20170818
  Transmission Date: 20171127
  Serious: Yes (Hospitalization)
  Sender: FDA-Public Use
  Company Number: NL-MERCK KGAA-2024799

PATIENT
  Age: 3 Year
  Sex: Male
  Weight: 17 kg

DRUGS (2)
  1. RENNIE DEFLATINE [Suspect]
     Active Substance: CALCIUM CARBONATE\DIMETHICONE\MAGNESIUM CARBONATE
  2. NOVOTHYROX [Suspect]
     Active Substance: LEVOTHYROXINE SODIUM
     Indication: PRODUCT USED FOR UNKNOWN INDICATION

REACTIONS (10)
  - Blood thyroid stimulating hormone increased [None]
  - Thyroxine free increased [None]
  - Blood thyroid stimulating hormone decreased [None]
  - Accidental overdose [None]
  - Tachycardia [None]
  - Toxicity to various agents [Unknown]
  - Overdose [Unknown]
  - Accidental exposure to product by child [None]
  - Tri-iodothyronine increased [None]
  - Tri-iodothyronine free increased [None]
